FAERS Safety Report 5143893-5 (Version None)
Quarter: 2006Q4

REPORT INFORMATION
  Report Type: 
  Country: None (occurrence: None)
  Receive Date: 20061102
  Receipt Date: 20061102
  Transmission Date: 20070319
  Serious: Yes (Other)
  Sender: FDA-Public Use
  Company Number: None

PATIENT
  Age: 31 Year
  Sex: Female
  Weight: 77.1115 kg

DRUGS (5)
  1. DEPAKOTE [Suspect]
     Dosage: 600 MG TWICE A DAY ORAL
     Route: 048
     Dates: start: 19970101, end: 20000101
  2. DEPAKOTE [Suspect]
     Dosage: 600 MG TWICE A DAY ORAL
     Route: 048
     Dates: start: 20041001, end: 20051201
  3. ROBITUSSIN [Concomitant]
  4. CEPACOL [Concomitant]
  5. ANTACID TAB [Concomitant]

REACTIONS (10)
  - ARTHRALGIA [None]
  - ENDODONTIC PROCEDURE [None]
  - GASTRIC ULCER [None]
  - GASTROOESOPHAGEAL REFLUX DISEASE [None]
  - JAW DISORDER [None]
  - JOINT RANGE OF MOTION DECREASED [None]
  - JOINT SWELLING [None]
  - NERVE INJURY [None]
  - OEDEMA PERIPHERAL [None]
  - RESPIRATORY DISORDER [None]
